FAERS Safety Report 6769684-7 (Version None)
Quarter: 2010Q2

REPORT INFORMATION
  Report Type: 
  Country: None (occurrence: None)
  Receive Date: 20100615
  Receipt Date: 20100608
  Transmission Date: 20101027
  Serious: Yes (Other)
  Sender: FDA-Public Use
  Company Number: GB-ROCHE-474791

PATIENT
  Sex: Female
  Weight: 63 kg

DRUGS (6)
  1. HERCEPTIN [Suspect]
     Route: 042
     Dates: start: 20061116
  2. HERCEPTIN [Suspect]
     Route: 042
     Dates: start: 20061216
  3. CYCLOPHOSPHAMIDE [Concomitant]
     Indication: BREAST CANCER
     Route: 042
     Dates: start: 20060227, end: 20060629
  4. METHOTREXATE [Concomitant]
     Indication: BREAST CANCER
     Route: 042
     Dates: start: 20060227, end: 20060629
  5. FLUOROURACIL [Concomitant]
     Indication: BREAST CANCER
     Route: 042
     Dates: start: 20060227, end: 20060629
  6. EVOREL [Concomitant]
     Indication: MENOPAUSAL SYMPTOMS
     Route: 061
     Dates: start: 20031008

REACTIONS (2)
  - VISION BLURRED [None]
  - VISUAL ACUITY REDUCED [None]
